FAERS Safety Report 15188435 (Version 1)
Quarter: 2018Q3

REPORT INFORMATION
  Report Type: Spontaneous
  Country: DE (occurrence: DE)
  Receive Date: 20180724
  Receipt Date: 20180724
  Transmission Date: 20181010
  Serious: Yes (Life-Threatening)
  Sender: FDA-Public Use
  Company Number: DE-ROCHE-2158714

PATIENT
  Age: 1 Day
  Sex: Male
  Weight: 3.2 kg

DRUGS (6)
  1. KETANEST [Suspect]
     Active Substance: KETAMINE HYDROCHLORIDE
     Indication: RESTLESSNESS
     Route: 042
  2. AMPICILLIN [Concomitant]
     Active Substance: AMPICILLIN
     Route: 042
  3. GENTAMICIN. [Concomitant]
     Active Substance: GENTAMICIN
     Route: 042
  4. DIAZEPAM. [Suspect]
     Active Substance: DIAZEPAM
     Indication: RESTLESSNESS
     Route: 042
  5. KONAKION [Concomitant]
     Active Substance: PHYTONADIONE
     Route: 030
  6. CHLORAL HYDRATE [Concomitant]
     Active Substance: CHLORAL HYDRATE
     Route: 048

REACTIONS (3)
  - Shock symptom [Recovered/Resolved]
  - Hypertension [Recovered/Resolved]
  - Apnoea [Recovered/Resolved]

NARRATIVE: CASE EVENT DATE: 20180329
